FAERS Safety Report 10306569 (Version 1)
Quarter: 2014Q3

REPORT INFORMATION
  Report Type: Spontaneous
  Country: CH (occurrence: CH)
  Receive Date: 20140715
  Receipt Date: 20140715
  Transmission Date: 20150326
  Serious: Yes (Hospitalization)
  Sender: FDA-Public Use
  Company Number: PHHY2014CH085902

PATIENT
  Age: 73 Year
  Sex: Male
  Weight: 91 kg

DRUGS (18)
  1. RIMACTAN SANDOZ [Suspect]
     Active Substance: RIFAMPIN
     Indication: LATENT TUBERCULOSIS
     Dosage: 600 MG, QD
     Route: 048
     Dates: start: 20140523, end: 20140528
  2. ASPIRIN CARDIO [Concomitant]
     Active Substance: ASPIRIN
     Indication: ATRIAL FIBRILLATION
     Dosage: 100 MG, QD
     Route: 048
  3. VITAMIN B6 STREULI [Concomitant]
     Indication: VITAMIN SUPPLEMENTATION
     Dosage: 40 MG, QD
     Route: 048
  4. COLD CREAM [Concomitant]
     Active Substance: COLD CREAM
     Indication: PRURITUS
     Dosage: 1 DF, BID
     Route: 061
  5. NEURONTIN [Concomitant]
     Active Substance: GABAPENTIN
     Dosage: 400 MG, BID
     Route: 048
  6. PREDNISON GALEPHARM [Concomitant]
     Active Substance: PREDNISONE
     Indication: PEMPHIGOID
     Dosage: 5 MG, QD
     Route: 048
  7. DERMOVATE [Concomitant]
     Active Substance: CLOBETASOL
     Indication: PEMPHIGOID
     Route: 061
  8. CALCIMAGON D3 [Concomitant]
     Active Substance: CALCIUM\CHOLECALCIFEROL
     Indication: OSTEOPOROSIS
     Dosage: 1 DF, QD
     Route: 048
  9. ATARAX [Concomitant]
     Active Substance: HYDROXYZINE\HYDROXYZINE HYDROCHLORIDE
     Indication: PRURITUS
     Dosage: 25 MG, QD
     Route: 048
  10. PRADIF T [Concomitant]
     Active Substance: TAMSULOSIN HYDROCHLORIDE
     Indication: BENIGN PROSTATIC HYPERPLASIA
     Dosage: 0.4 MG, QD
     Route: 048
  11. DERMOVATE [Concomitant]
     Active Substance: CLOBETASOL
     Indication: DERMATITIS BULLOUS
     Route: 061
  12. DERMOVATE SCALP [Concomitant]
     Route: 061
  13. BALMANDOL [Concomitant]
     Route: 061
  14. MAGNESIOCARD CITRON [Concomitant]
     Dosage: 7.5 MMOL, BID
     Route: 048
  15. BELOC ZOK [Concomitant]
     Active Substance: METOPROLOL SUCCINATE
     Indication: CARDIAC FAILURE CHRONIC
     Dosage: 100 MG, QD
     Route: 048
  16. BENERVA [Concomitant]
     Active Substance: THIAMINE
     Indication: VITAMIN SUPPLEMENTATION
     Dosage: 100 MG, QD
     Route: 048
  17. XYZAL [Concomitant]
     Active Substance: LEVOCETIRIZINE DIHYDROCHLORIDE
     Indication: PRURITUS
     Dosage: 5 MG, BID
     Route: 048
  18. EXCIPIAL [Concomitant]
     Indication: DERMATITIS BULLOUS
     Dosage: 1 DF, TID
     Route: 061

REACTIONS (3)
  - Rash maculo-papular [Recovering/Resolving]
  - Pruritus [Recovering/Resolving]
  - Biopsy skin abnormal [Recovered/Resolved]

NARRATIVE: CASE EVENT DATE: 20140531
